FAERS Safety Report 16385993 (Version 4)
Quarter: 2019Q3

REPORT INFORMATION
  Report Type: Report from Study
  Country: US (occurrence: US)
  Receive Date: 20190603
  Receipt Date: 20190710
  Transmission Date: 20191004
  Serious: Yes (Hospitalization)
  Sender: FDA-Public Use
  Company Number: US-ACTELION-A-NJ2017-164283

PATIENT
  Sex: Female
  Weight: 79.82 kg

DRUGS (6)
  1. VELETRI [Suspect]
     Active Substance: EPOPROSTENOL
     Dosage: 71 NG/KG, PER MIN
     Route: 042
  2. ADCIRCA [Concomitant]
     Active Substance: TADALAFIL
  3. VELETRI [Suspect]
     Active Substance: EPOPROSTENOL
     Indication: PULMONARY ARTERIAL HYPERTENSION
     Dosage: 79 NG/KG, PER MIN
     Route: 042
  4. VELETRI [Suspect]
     Active Substance: EPOPROSTENOL
     Dosage: 61 NG/KG, PER MIN
     Route: 042
  5. LETAIRIS [Concomitant]
     Active Substance: AMBRISENTAN
  6. VELETRI [Suspect]
     Active Substance: EPOPROSTENOL
     Dosage: 60 NG/KG, PER MIN
     Route: 042

REACTIONS (16)
  - Paraesthesia [Unknown]
  - Flushing [Unknown]
  - Chest pain [Unknown]
  - Chest discomfort [Unknown]
  - Headache [Unknown]
  - Fatigue [Unknown]
  - Asthenia [Unknown]
  - Dizziness [Unknown]
  - Diarrhoea [Unknown]
  - Transplant evaluation [Unknown]
  - Palpitations [Unknown]
  - Dyspnoea [Recovering/Resolving]
  - Unevaluable event [Unknown]
  - Pulmonary arterial hypertension [Unknown]
  - Pain in jaw [Unknown]
  - Dyspnoea exertional [Unknown]
